FAERS Safety Report 9854823 (Version 2)
Quarter: 2014Q2

REPORT INFORMATION
  Report Type: Spontaneous
  Country: US (occurrence: US)
  Receive Date: 20140130
  Receipt Date: 20140402
  Transmission Date: 20141212
  Serious: Yes (Other)
  Sender: FDA-Public Use
  Company Number: US-ROCHE-1340546

PATIENT
  Age: 43 Year
  Sex: Female

DRUGS (2)
  1. TRASTUZUMAB [Suspect]
     Indication: METASTASES TO MENINGES
     Route: 037
  2. TRASTUZUMAB [Suspect]
     Indication: BREAST CANCER METASTATIC

REACTIONS (1)
  - Meningitis aseptic [Not Recovered/Not Resolved]
